FAERS Safety Report 9157832 (Version 2)
Quarter: 2013Q2

REPORT INFORMATION
  Report Type: Spontaneous
  Country: US (occurrence: US)
  Receive Date: 20130312
  Receipt Date: 20130605
  Transmission Date: 20140414
  Serious: Yes (Death, Hospitalization)
  Sender: FDA-Public Use
  Company Number: US-ELI_LILLY_AND_COMPANY-US201110004379

PATIENT
  Sex: Female

DRUGS (13)
  1. FORTEO [Suspect]
     Indication: OSTEOPOROSIS
     Dosage: 20 UG, QD
     Route: 058
     Dates: start: 20111012, end: 20121101
  2. XOPENEX HFA [Concomitant]
  3. FLORINEF [Concomitant]
  4. COLACE [Concomitant]
  5. NEURONTIN [Concomitant]
  6. FERROUS SULFATE [Concomitant]
  7. SYNTHROID [Concomitant]
  8. REMERON [Concomitant]
  9. POTASSIUM CHLORIDE [Concomitant]
  10. FLOMAX [Concomitant]
  11. FOLIC ACID [Concomitant]
  12. ATIVAN [Concomitant]
  13. MORPHINE SULFATE [Concomitant]

REACTIONS (6)
  - Pulmonary fibrosis [Fatal]
  - Respiratory failure [Fatal]
  - Fall [Unknown]
  - Flushing [Unknown]
  - Burning sensation [Unknown]
  - Pain of skin [Unknown]
